FAERS Safety Report 10082848 (Version 2)
Quarter: 2014Q2

REPORT INFORMATION
  Report Type: Report from Study
  Country: CA (occurrence: CA)
  Receive Date: 20140416
  Receipt Date: 20140424
  Transmission Date: 20141212
  Serious: Yes (Hospitalization)
  Sender: FDA-Public Use
  Company Number: PHHY2014CA046355

PATIENT
  Sex: Female

DRUGS (1)
  1. CLOZARIL [Suspect]
     Dosage: UNK
     Dates: start: 20050712, end: 20140411

REACTIONS (3)
  - Clostridium difficile infection [Unknown]
  - Pneumonia aspiration [Unknown]
  - Wrong technique in drug usage process [Unknown]
